FAERS Safety Report 8567229-2 (Version None)
Quarter: 2012Q3

REPORT INFORMATION
  Report Type: 
  Country: None (occurrence: None)
  Receive Date: 20120730
  Receipt Date: 20120730
  Transmission Date: 20120928
  Serious: Yes (Other)
  Sender: FDA-Public Use
  Company Number: None

PATIENT
  Age: 48 Year
  Sex: Female
  Weight: 113.3993 kg

DRUGS (1)
  1. ACTOS [Suspect]
     Indication: DIABETES MELLITUS
     Dosage: 45 MG, 1 X DAY, PO
     Route: 048
     Dates: start: 20101001, end: 20120621

REACTIONS (3)
  - JOINT EFFUSION [None]
  - JOINT SWELLING [None]
  - ARTHRALGIA [None]
